FAERS Safety Report 18735787 (Version 1)
Quarter: 2021Q1

REPORT INFORMATION
  Report Type: Spontaneous
  Country: FR (occurrence: FR)
  Receive Date: 20210113
  Receipt Date: 20210113
  Transmission Date: 20210419
  Serious: Yes (Death, Life-Threatening, Hospitalization)
  Sender: FDA-Public Use
  Company Number: FR-PFIZER INC-2021016055

PATIENT
  Age: 60 Year
  Sex: Male
  Weight: 55 kg

DRUGS (11)
  1. METHYLPHENIDATE. [Concomitant]
     Active Substance: METHYLPHENIDATE
  2. OXYNORMORO [Concomitant]
     Active Substance: OXYCODONE HYDROCHLORIDE
  3. PACLITAXEL. [Suspect]
     Active Substance: PACLITAXEL
     Indication: SQUAMOUS CELL CARCINOMA OF LUNG
     Dosage: 97.2 MG, SINGLE
     Route: 042
     Dates: start: 20201023, end: 20201023
  4. ONDANSETRON [Concomitant]
     Active Substance: ONDANSETRON
  5. POLARAMINE [Concomitant]
     Active Substance: DEXCHLORPHENIRAMINE MALEATE
  6. AZANTAC [Concomitant]
     Active Substance: RANITIDINE HYDROCHLORIDE
  7. CARBOPLATIN. [Suspect]
     Active Substance: CARBOPLATIN
     Indication: SQUAMOUS CELL CARCINOMA OF LUNG
     Dosage: 765 MG, SINGLE
     Route: 042
     Dates: start: 20201023, end: 20201023
  8. GLUCIDION [Concomitant]
     Active Substance: GLUCOSE, LIQUID\POTASSIUM CHLORIDE\SODIUM CHLORIDE
  9. MACROGOL [Concomitant]
     Active Substance: POLYETHYLENE GLYCOLS
  10. IMOVANE [Concomitant]
     Active Substance: ZOPICLONE
  11. PACLITAXEL. [Suspect]
     Active Substance: PACLITAXEL
     Dosage: 97.2 MG, SINGLE
     Route: 042
     Dates: start: 20201120, end: 20201120

REACTIONS (5)
  - Diarrhoea [Not Recovered/Not Resolved]
  - Cardiogenic shock [Fatal]
  - Septic shock [Fatal]
  - Multiple organ dysfunction syndrome [Fatal]
  - Pancytopenia [Fatal]

NARRATIVE: CASE EVENT DATE: 20201106
